FAERS Safety Report 14281660 (Version 26)
Quarter: 2019Q3

REPORT INFORMATION
  Report Type: Spontaneous
  Country: CA (occurrence: CA)
  Receive Date: 20171213
  Receipt Date: 20190828
  Transmission Date: 20191004
  Serious: Yes (Hospitalization, Other)
  Sender: FDA-Public Use
  Company Number: CA-CELLTRION INC.-2017CA011592

PATIENT

DRUGS (17)
  1. INFLECTRA [Suspect]
     Active Substance: INFLIXIMAB-DYYB
     Dosage: 5 MG/KG OR 400 MG, EVERY 4 WEEKS
     Route: 042
     Dates: start: 20181218
  2. INFLECTRA [Suspect]
     Active Substance: INFLIXIMAB-DYYB
     Dosage: 400 MG, EVERY 6 WEEKS
     Route: 042
     Dates: start: 20180124, end: 20180124
  3. INFLECTRA [Suspect]
     Active Substance: INFLIXIMAB-DYYB
     Dosage: 310 MG, UNK
     Route: 042
     Dates: start: 20181002
  4. INFLECTRA [Suspect]
     Active Substance: INFLIXIMAB-DYYB
     Dosage: 5 MG/KG, EVERY 6 WEEKS
     Route: 042
     Dates: start: 20181113
  5. INFLECTRA [Suspect]
     Active Substance: INFLIXIMAB-DYYB
     Dosage: 5 MG/KG OR 400 MG, EVERY 4 WEEKS
     Route: 042
     Dates: start: 20190612
  6. INFLECTRA [Suspect]
     Active Substance: INFLIXIMAB-DYYB
     Dosage: 5 MG/KG OR 400 MG, EVERY 4 WEEKS
     Route: 042
     Dates: start: 20190808
  7. PREDNISONE. [Concomitant]
     Active Substance: PREDNISONE
     Dosage: 40 MG, UNK
  8. INFLECTRA [Suspect]
     Active Substance: INFLIXIMAB-DYYB
     Dosage: 400 MG, 0, 2, 6 THEN EVERY 8 WEEKS
     Route: 042
     Dates: start: 20171213, end: 20171213
  9. INFLECTRA [Suspect]
     Active Substance: INFLIXIMAB-DYYB
     Dosage: 400 MG, EVERY 6 WEEKS
     Route: 042
  10. INFLECTRA [Suspect]
     Active Substance: INFLIXIMAB-DYYB
     Dosage: 400 MG, EVERY 4 WEEKS
     Route: 042
     Dates: start: 20180222, end: 20180703
  11. SERTRALINE [Concomitant]
     Active Substance: SERTRALINE HYDROCHLORIDE
     Dosage: 50 MG, UNK
  12. INFLECTRA [Suspect]
     Active Substance: INFLIXIMAB-DYYB
     Indication: CROHN^S DISEASE
     Dosage: 400 MG, 0, 2, 6 THEN EVERY 8 WEEKS
     Route: 042
     Dates: start: 20170822, end: 20171213
  13. INFLECTRA [Suspect]
     Active Substance: INFLIXIMAB-DYYB
     Dosage: 400 MG, EVERY 4 WEEKS
     Route: 042
     Dates: start: 20180423
  14. INFLECTRA [Suspect]
     Active Substance: INFLIXIMAB-DYYB
     Dosage: 5 MG/KG, EVERY 6 WEEKS
     Route: 042
     Dates: start: 20180814, end: 20181113
  15. INFLECTRA [Suspect]
     Active Substance: INFLIXIMAB-DYYB
     Dosage: 400 MG, EVERY 4 WEEKS
     Route: 042
     Dates: start: 20180604
  16. INFLECTRA [Suspect]
     Active Substance: INFLIXIMAB-DYYB
     Dosage: 400 MG, EVERY 4 WEEKS
     Route: 042
     Dates: start: 20180703
  17. INFLECTRA [Suspect]
     Active Substance: INFLIXIMAB-DYYB
     Dosage: 5 MG/KG OR 400 MG, EVERY 4 WEEKS
     Route: 042
     Dates: start: 20190710

REACTIONS (21)
  - Abdominal discomfort [Recovered/Resolved]
  - Joint stiffness [Unknown]
  - Pain in extremity [Unknown]
  - Restless legs syndrome [Unknown]
  - Off label use [Unknown]
  - Musculoskeletal stiffness [Unknown]
  - Abdominal pain upper [Not Recovered/Not Resolved]
  - Drug level above therapeutic [Unknown]
  - Drug level decreased [Recovered/Resolved]
  - Off label use [Unknown]
  - Condition aggravated [Recovered/Resolved]
  - Gastroenteritis viral [Recovering/Resolving]
  - Weight increased [Not Recovered/Not Resolved]
  - Intentional product use issue [Unknown]
  - Dehydration [Recovering/Resolving]
  - Arthralgia [Unknown]
  - Body temperature fluctuation [Unknown]
  - Abortion spontaneous [Unknown]
  - Abdominal distension [Unknown]
  - Flatulence [Unknown]
  - Vomiting [Recovered/Resolved]

NARRATIVE: CASE EVENT DATE: 2017
